FAERS Safety Report 7346227-0 (Version None)
Quarter: 2011Q1

REPORT INFORMATION
  Report Type: 
  Country: None (occurrence: None)
  Receive Date: 20110311
  Receipt Date: 20110309
  Transmission Date: 20110831
  Serious: Yes (Disabling)
  Sender: FDA-Public Use
  Company Number: US-PFIZER INC-2011052601

PATIENT
  Sex: Female
  Weight: 101.2 kg

DRUGS (10)
  1. CYMBALTA [Concomitant]
     Dosage: UNK
  2. REVATIO [Suspect]
     Indication: PULMONARY HYPERTENSION
     Dosage: 20 MG, 3X/DAY
     Route: 048
     Dates: start: 20100825, end: 20110304
  3. POTASSIUM [Concomitant]
     Dosage: 40 MG, UNK
     Route: 048
  4. LISINOPRIL [Concomitant]
     Dosage: 40 MG, 1X/DAY
     Route: 048
  5. OMEPRAZOLE [Concomitant]
     Dosage: UNK
  6. TAMSULOSIN HYDROCHLORIDE [Concomitant]
     Dosage: UNK
  7. PROVIGIL [Concomitant]
     Dosage: UNK
  8. ALISKIREN [Concomitant]
     Dosage: UNK
  9. RAMIPRIL [Concomitant]
     Dosage: UNK
  10. LASIX [Concomitant]
     Dosage: 40 MG, 3X/DAY
     Route: 048

REACTIONS (1)
  - DEAFNESS [None]
